FAERS Safety Report 7479123-9 (Version None)
Quarter: 2011Q2

REPORT INFORMATION
  Report Type: 
  Country: None (occurrence: None)
  Receive Date: 20110513
  Receipt Date: 20110511
  Transmission Date: 20111010
  Serious: Yes (Hospitalization)
  Sender: FDA-Public Use
  Company Number: GB-BRISTOL-MYERS SQUIBB COMPANY-13343496

PATIENT
  Age: 42 Year
  Sex: Male

DRUGS (3)
  1. SPRYCEL [Suspect]
     Indication: LEUKAEMIA
     Route: 048
     Dates: start: 20060327, end: 20060411
  2. METFORMIN HCL [Concomitant]
     Dates: start: 20031001
  3. BEZAFIBRATE [Concomitant]
     Dates: start: 20020101

REACTIONS (1)
  - THROMBOCYTOPENIA [None]
